FAERS Safety Report 6860737-1 (Version None)
Quarter: 2010Q3

REPORT INFORMATION
  Report Type: 
  Country: None (occurrence: None)
  Receive Date: 20100719
  Receipt Date: 20100719
  Transmission Date: 20110219
  Serious: No
  Sender: FDA-Public Use
  Company Number: None

PATIENT
  Age: 55 Year
  Sex: Female
  Weight: 63.5036 kg

DRUGS (1)
  1. BOTOX [Suspect]
     Indication: MIGRAINE
     Dosage: 20 INJECTIONS ; 1 TIME
     Dates: start: 20100108, end: 20100108

REACTIONS (16)
  - ACTIVITIES OF DAILY LIVING IMPAIRED [None]
  - BURNING SENSATION [None]
  - CONDITION AGGRAVATED [None]
  - DISCOMFORT [None]
  - DRUG HYPERSENSITIVITY [None]
  - EMOTIONAL DISORDER [None]
  - EXTRAOCULAR MUSCLE PARESIS [None]
  - EYE DISORDER [None]
  - EYE PAIN [None]
  - EYE SWELLING [None]
  - FATIGUE [None]
  - MIGRAINE [None]
  - SKIN CHAPPED [None]
  - SKIN HAEMORRHAGE [None]
  - SKIN SWELLING [None]
  - VISUAL IMPAIRMENT [None]
